FAERS Safety Report 10901104 (Version 1)
Quarter: 2015Q1

REPORT INFORMATION
  Report Type: Report from Study
  Country: US (occurrence: US)
  Receive Date: 20150310
  Receipt Date: 20150310
  Transmission Date: 20150721
  Serious: Yes (Other)
  Sender: FDA-Public Use
  Company Number: US-SA-2015SA026876

PATIENT
  Age: 62 Year
  Sex: Female

DRUGS (2)
  1. ROBITUSSIN (GUAIFENESIN) [Interacting]
     Active Substance: GUAIFENESIN
     Route: 065
     Dates: start: 2015
  2. AUBAGIO [Suspect]
     Active Substance: TERIFLUNOMIDE
     Indication: MULTIPLE SCLEROSIS
     Route: 048
     Dates: start: 20150219

REACTIONS (9)
  - Insomnia [Unknown]
  - Inappropriate affect [Unknown]
  - Drug interaction [Unknown]
  - Seizure [Unknown]
  - Cough [Unknown]
  - Malaise [Unknown]
  - Speech disorder [Unknown]
  - Feeling abnormal [Unknown]
  - Sinusitis [Unknown]

NARRATIVE: CASE EVENT DATE: 2015
